FAERS Safety Report 6682742-0 (Version None)
Quarter: 2010Q2

REPORT INFORMATION
  Report Type: 
  Country: None (occurrence: None)
  Receive Date: 20100415
  Receipt Date: 20100401
  Transmission Date: 20101027
  Serious: No
  Sender: FDA-Public Use
  Company Number: BE-ELI_LILLY_AND_COMPANY-BE201002005246

PATIENT
  Sex: Male
  Weight: 81 kg

DRUGS (8)
  1. BYETTA [Suspect]
     Indication: DIABETES MELLITUS INADEQUATE CONTROL
     Dosage: 10 UG, UNK
     Route: 065
     Dates: start: 20091027, end: 20091127
  2. BYETTA [Suspect]
     Dosage: 10 UG, 2/D
     Route: 065
     Dates: start: 20091127, end: 20100219
  3. BYETTA [Suspect]
     Dosage: 5 UG, 2/D
     Route: 058
     Dates: start: 20100219, end: 20100322
  4. NOVONORM [Concomitant]
     Indication: DIABETES MELLITUS INADEQUATE CONTROL
     Dosage: 4 MG, 4/D
     Route: 065
     Dates: end: 20091027
  5. NOVONORM [Concomitant]
     Dosage: 2 MG, 3/D
     Dates: start: 20091027, end: 20100322
  6. TRITACE [Concomitant]
     Dosage: 10 MG, DAILY (1/D)
  7. CRESTOR [Concomitant]
     Dosage: 10 MG, 1/2
  8. ASAFLOW [Concomitant]
     Dosage: 160 MG, UNK

REACTIONS (4)
  - AGEUSIA [None]
  - DECREASED APPETITE [None]
  - DEHYDRATION [None]
  - RENAL FAILURE [None]
